FAERS Safety Report 21885811 (Version 1)
Quarter: 2023Q1

REPORT INFORMATION
  Report Type: Spontaneous
  Country: US (occurrence: US)
  Receive Date: 20230119
  Receipt Date: 20230119
  Transmission Date: 20230417
  Serious: No
  Sender: FDA-Public Use
  Company Number: US-SANOFI-01444753

PATIENT
  Age: 44 Year
  Sex: Female

DRUGS (1)
  1. LOVENOX [Suspect]
     Active Substance: ENOXAPARIN SODIUM
     Dosage: 50 MG BID

REACTIONS (4)
  - Injection site bruising [Unknown]
  - Feeling abnormal [Unknown]
  - Injection site pain [Unknown]
  - Exposure during pregnancy [Unknown]
